FAERS Safety Report 8009329-1 (Version None)
Quarter: 2011Q4

REPORT INFORMATION
  Report Type: 
  Country: None (occurrence: None)
  Receive Date: 20111221
  Receipt Date: 20111208
  Transmission Date: 20120403
  Serious: Yes (Other)
  Sender: FDA-Public Use
  Company Number: AUR-APL-2011-06188

PATIENT
  Age: 58 Year
  Sex: Female

DRUGS (2)
  1. MIRTAZAPINE [Suspect]
     Indication: SUICIDE ATTEMPT
     Dosage: (50 DOSAGE FORMS, TOTAL)
     Dates: start: 20111201
  2. ATARAX [Suspect]
     Indication: SUICIDE ATTEMPT
     Dosage: (75 DOSAGE FORMS, TOTAL)
     Dates: start: 20111201

REACTIONS (5)
  - SUICIDE ATTEMPT [None]
  - SPEECH DISORDER [None]
  - INCORRECT DOSE ADMINISTERED [None]
  - SYSTOLIC HYPERTENSION [None]
  - SOMNOLENCE [None]
